FAERS Safety Report 10985090 (Version 1)
Quarter: 2015Q2

REPORT INFORMATION
  Report Type: Spontaneous
  Country: US (occurrence: US)
  Receive Date: 20150404
  Receipt Date: 20150404
  Transmission Date: 20150821
  Serious: No
  Sender: FDA-Public Use
  Company Number: US-009507513-1504USA000931

PATIENT
  Sex: Female

DRUGS (1)
  1. NUVARING [Suspect]
     Active Substance: ETHINYL ESTRADIOL\ETONOGESTREL
     Dosage: DOSE/FREQUENCY: 1 RING/UNSPECIFIED FREQUENCY
     Route: 067

REACTIONS (2)
  - Incorrect product storage [Unknown]
  - No adverse event [Unknown]
